FAERS Safety Report 7154937-3 (Version None)
Quarter: 2010Q4

REPORT INFORMATION
  Report Type: 
  Country: None (occurrence: None)
  Receive Date: 20101214
  Receipt Date: 20091117
  Transmission Date: 20110411
  Serious: No
  Sender: FDA-Public Use
  Company Number: US-AMGEN-KDL375169

PATIENT

DRUGS (3)
  1. ENBREL [Suspect]
     Indication: PRODUCT USED FOR UNKNOWN INDICATION
     Dosage: 25 MG, 2 TIMES/WK
     Route: 058
     Dates: start: 20010101
  2. BUPROPION [Concomitant]
     Dosage: 300 MG, UNK
  3. PIROXICAM [Concomitant]
     Dosage: 20 MG, UNK

REACTIONS (3)
  - BRONCHOPNEUMONIA [None]
  - DYSKINESIA [None]
  - TIC [None]
